FAERS Safety Report 22071060 (Version 1)
Quarter: 2023Q1

REPORT INFORMATION
  Report Type: Spontaneous
  Country: US (occurrence: None)
  Receive Date: 20230307
  Receipt Date: 20230307
  Transmission Date: 20230418
  Serious: Yes (Other)
  Sender: FDA-Public Use
  Company Number: None

PATIENT
  Age: 28 Year
  Sex: Male
  Weight: 92.25 kg

DRUGS (3)
  1. ESCITALOPRAM [Suspect]
     Active Substance: ESCITALOPRAM OXALATE
     Indication: Anxiety disorder
     Dosage: OTHER QUANTITY : 2 TABLET(S);?
     Route: 048
     Dates: start: 20230130, end: 20230202
  2. VITAMIN E [Concomitant]
     Active Substance: .ALPHA.-TOCOPHEROL
  3. FISH OIL [Concomitant]
     Active Substance: FISH OIL

REACTIONS (5)
  - Vision blurred [None]
  - Product substitution issue [None]
  - Vision blurred [None]
  - Impaired work ability [None]
  - Neurological symptom [None]

NARRATIVE: CASE EVENT DATE: 20230130
